FAERS Safety Report 11701282 (Version 1)
Quarter: 2015Q4

REPORT INFORMATION
  Report Type: Spontaneous
  Country: JP (occurrence: JP)
  Receive Date: 20151105
  Receipt Date: 20151105
  Transmission Date: 20160304
  Serious: Yes (Hospitalization)
  Sender: FDA-Public Use
  Company Number: JP-AKORN PHARMACEUTICALS-2015AKN00641

PATIENT
  Age: 70 Year
  Sex: Male

DRUGS (5)
  1. ZIOPTAN [Suspect]
     Active Substance: TAFLUPROST
     Indication: GLAUCOMA
     Dosage: 1 GTT, DAILY, BOTH EYES
     Route: 047
     Dates: start: 20131115
  2. KARY UNI [Concomitant]
     Active Substance: PIRENOXINE
     Dosage: EYE DROPS, SOLUTION
     Route: 047
  3. LENIMEC [Concomitant]
     Active Substance: ENALAPRIL
     Dosage: UNK TABLETS, UNK
     Dates: end: 20140412
  4. BENIDIPINE HYDROCHLORIDE [Concomitant]
     Active Substance: BENIDIPINE HYDROCHLORIDE
     Dosage: UNK TABLETS, UNK
  5. ENALAPRIL MALEATE. [Concomitant]
     Active Substance: ENALAPRIL MALEATE
     Dosage: UNK TABLETS, UNK
     Dates: start: 20140412

REACTIONS (1)
  - Spinal column injury [Unknown]

NARRATIVE: CASE EVENT DATE: 20150507
